FAERS Safety Report 11450028 (Version 1)
Quarter: 2015Q3

REPORT INFORMATION
  Report Type: Spontaneous
  Country: US (occurrence: US)
  Receive Date: 20150903
  Receipt Date: 20150903
  Transmission Date: 20151125
  Serious: No
  Sender: FDA-Public Use
  Company Number: US-ROCHE-1080651

PATIENT
  Sex: Male

DRUGS (4)
  1. TELAPREVIR [Suspect]
     Active Substance: TELAPREVIR
     Indication: CHRONIC HEPATITIS C
     Route: 065
     Dates: start: 20120324
  2. PEGASYS [Suspect]
     Active Substance: PEGINTERFERON ALFA-2A
     Indication: CHRONIC HEPATITIS C
     Route: 058
     Dates: start: 20120324
  3. RIBASPHERE [Suspect]
     Active Substance: RIBAVIRIN
     Indication: CHRONIC HEPATITIS C
     Route: 065
     Dates: start: 20120324
  4. RIBASPHERE [Suspect]
     Active Substance: RIBAVIRIN
     Route: 065

REACTIONS (11)
  - Sensory disturbance [Unknown]
  - Paraesthesia [Unknown]
  - Dry mouth [Unknown]
  - Glossodynia [Unknown]
  - Rash [Unknown]
  - Skin warm [Unknown]
  - Pruritus [Unknown]
  - Pharyngeal hypoaesthesia [Unknown]
  - Swelling face [Unknown]
  - Anaemia [Unknown]
  - Pain in extremity [Unknown]
